FAERS Safety Report 6094013-4 (Version None)
Quarter: 2009Q1

REPORT INFORMATION
  Report Type: 
  Country: None (occurrence: None)
  Receive Date: 20090223
  Receipt Date: 20090210
  Transmission Date: 20090719
  Serious: Yes (Hospitalization, Other)
  Sender: FDA-Public Use
  Company Number: GXKR2008DE11348

PATIENT
  Sex: Female
  Weight: 80 kg

DRUGS (10)
  1. ASPIRIN [Suspect]
     Dosage: 100 MG, QD
     Dates: start: 19950101, end: 20081106
  2. DIPYRONE TAB [Suspect]
     Indication: PAIN
     Dosage: 500 MG, BID
     Dates: start: 20070701, end: 20081106
  3. DIPYRONE TAB [Suspect]
     Indication: PAIN
     Dosage: 2500 MG, QD, INTRAVENOUS
     Route: 042
     Dates: start: 20081105, end: 20081105
  4. DICLOFENAC SODIUM [Suspect]
     Indication: PAIN
     Dosage: 75 MG, OT
     Route: 048
     Dates: start: 20080701, end: 20081106
  5. SIMVASTATIN [Suspect]
     Indication: HYPERCHOLESTEROLAEMIA
     Dosage: 15 MG, QD
     Dates: start: 20080901, end: 20081106
  6. TAMSULOSIN HCL [Concomitant]
  7. TRIAMCINOLONE [Concomitant]
  8. MEPIVACAINE HCL [Concomitant]
  9. RHEUMON (ETOFENAMATE) [Concomitant]
  10. TORSEMIDE [Concomitant]

REACTIONS (1)
  - AGRANULOCYTOSIS [None]
